FAERS Safety Report 5827649-3 (Version None)
Quarter: 2008Q3

REPORT INFORMATION
  Report Type: 
  Country: None (occurrence: None)
  Receive Date: 20080725
  Receipt Date: 20080716
  Transmission Date: 20090109
  Serious: Yes (Hospitalization)
  Sender: FDA-Public Use
  Company Number: 2008BI017794

PATIENT
  Age: 46 Year
  Sex: Female

DRUGS (3)
  1. AVONEX [Suspect]
     Indication: MULTIPLE SCLEROSIS
     Dosage: 30 UG; QW; IM
     Route: 030
     Dates: start: 20070201
  2. DILAUDID [Concomitant]
  3. BACLOFEN [Concomitant]

REACTIONS (5)
  - BODY TEMPERATURE INCREASED [None]
  - CATHETER SEPSIS [None]
  - HERPES ZOSTER [None]
  - MULTIPLE SCLEROSIS [None]
  - WHITE BLOOD CELL COUNT DECREASED [None]
